FAERS Safety Report 26076143 (Version 1)
Quarter: 2025Q4

REPORT INFORMATION
  Report Type: Spontaneous
  Country: GB (occurrence: GB)
  Receive Date: 20251121
  Receipt Date: 20251121
  Transmission Date: 20260117
  Serious: Yes (Other)
  Sender: NOVA LABORATORIES LIMITED
  Company Number: GB-Nova Laboratories Limited-2189071

PATIENT
  Sex: Female

DRUGS (2)
  1. PURIXAN [Suspect]
     Active Substance: MERCAPTOPURINE
     Indication: Crohn^s disease
     Dates: start: 20250703, end: 20250903
  2. INDAPAMIDE [Concomitant]
     Active Substance: INDAPAMIDE
     Dates: start: 20240701

REACTIONS (5)
  - Urticaria [Not Recovered/Not Resolved]
  - Off label use [Unknown]
  - Abdominal pain upper [Unknown]
  - Chromaturia [Recovered/Resolved]
  - Mechanical urticaria [Not Recovered/Not Resolved]

NARRATIVE: CASE EVENT DATE: 20250903
